FAERS Safety Report 16909876 (Version 2)
Quarter: 2020Q1

REPORT INFORMATION
  Report Type: Report from Study
  Country: CA (occurrence: CA)
  Receive Date: 20191011
  Receipt Date: 20200106
  Transmission Date: 20200409
  Serious: Yes (Hospitalization, Other)
  Sender: FDA-Public Use
  Company Number: CA-MYLANLABS-2019M1094261

PATIENT
  Sex: Female

DRUGS (10)
  1. LOSEC [Concomitant]
     Active Substance: OMEPRAZOLE
     Indication: GASTROOESOPHAGEAL REFLUX DISEASE
     Dosage: 1 DF, QD
     Route: 048
     Dates: start: 2008
  2. XOLAIR [Suspect]
     Active Substance: OMALIZUMAB
     Indication: ASTHMA
     Dosage: 300 MG, BIW
     Route: 058
     Dates: start: 20181129
  3. VITAMIN D                          /07503901/ [Concomitant]
     Active Substance: VITAMIN D NOS
     Indication: CYSTIC FIBROSIS
     Dosage: 1 DF, TID
     Route: 048
     Dates: start: 201803
  4. TOBI PODHALER [Suspect]
     Active Substance: TOBRAMYCIN
     Indication: ASTHMA
     Dosage: 1 DF, BID
     Route: 055
     Dates: start: 201805
  5. VENTOLIN [Concomitant]
     Active Substance: ALBUTEROL SULFATE
     Indication: ASTHMA
     Dosage: 2 DF, PRN
     Route: 055
     Dates: start: 2008
  6. XOLAIR [Suspect]
     Active Substance: OMALIZUMAB
     Dosage: 300 MG, TIW
     Route: 058
     Dates: start: 20190912
  7. ADVAIR HFA [Concomitant]
     Active Substance: FLUTICASONE PROPIONATE\SALMETEROL XINAFOATE
     Indication: ASTHMA
     Dosage: 2 DF, BID (25/250 UG)
     Route: 055
     Dates: start: 201803
  8. COTAZYM                            /00014701/ [Concomitant]
     Indication: CYSTIC FIBROSIS
     Dosage: 3 DF, UNK
     Route: 048
     Dates: start: 1993
  9. NORMAL SALINE [Concomitant]
     Active Substance: SODIUM CHLORIDE
     Indication: ASTHMA
     Dosage: 1 DF, BID (ALONG WITH MASK)
     Route: 055
     Dates: start: 201803
  10. VITAMIN E                          /00110501/ [Concomitant]
     Active Substance: TOCOPHEROL
     Indication: CYSTIC FIBROSIS
     Dosage: 1 DF (1000 UNITS), QD
     Route: 048
     Dates: start: 201803

REACTIONS (7)
  - Pneumonia [Unknown]
  - Mycotic allergy [Unknown]
  - Product use in unapproved indication [Unknown]
  - Forced expiratory volume decreased [Unknown]
  - Dyspnoea [Unknown]
  - Drug ineffective [Unknown]
  - Asthma [Recovering/Resolving]
